FAERS Safety Report 7879642-7 (Version None)
Quarter: 2011Q4

REPORT INFORMATION
  Report Type: 
  Country: None (occurrence: None)
  Receive Date: 20111101
  Receipt Date: 20111024
  Transmission Date: 20120403
  Serious: Yes (Other)
  Sender: FDA-Public Use
  Company Number: BR-GLAXOSMITHKLINE-A0951374A

PATIENT
  Age: 34 Year
  Sex: Male
  Weight: 98 kg

DRUGS (6)
  1. FUROSEMIDE [Suspect]
     Indication: PRODUCT USED FOR UNKNOWN INDICATION
     Dosage: 40MG TWICE PER DAY
     Route: 065
  2. LOSARTAN POTASSIUM [Suspect]
     Indication: PRODUCT USED FOR UNKNOWN INDICATION
     Dosage: 50MGD PER DAY
  3. RAMIPRIL [Suspect]
     Indication: PRODUCT USED FOR UNKNOWN INDICATION
     Dosage: 5MGD PER DAY
  4. SPIRONOLACTONE [Suspect]
     Indication: PRODUCT USED FOR UNKNOWN INDICATION
     Dosage: 25MGD PER DAY
  5. DIGOXIN [Suspect]
     Indication: PRODUCT USED FOR UNKNOWN INDICATION
     Dosage: .25MGD PER DAY
     Route: 048
  6. CARVEDILOL [Suspect]
     Indication: PRODUCT USED FOR UNKNOWN INDICATION
     Dosage: 25MG THREE TIMES PER DAY
     Route: 048

REACTIONS (23)
  - CYANOSIS [None]
  - PULMONARY CONGESTION [None]
  - PULMONARY HYPERTENSION [None]
  - ASCITES [None]
  - COUGH [None]
  - TACHYPNOEA [None]
  - BUNDLE BRANCH BLOCK LEFT [None]
  - HEPATOMEGALY [None]
  - MITRAL VALVE INCOMPETENCE [None]
  - PERIPHERAL PULSE DECREASED [None]
  - ABDOMINAL DISTENSION [None]
  - CARDIOMEGALY [None]
  - SINUS TACHYCARDIA [None]
  - OEDEMA PERIPHERAL [None]
  - LUNG INFILTRATION [None]
  - LEFT VENTRICULAR DYSFUNCTION [None]
  - CARDIAC FAILURE [None]
  - TRICUSPID VALVE INCOMPETENCE [None]
  - CARDIAC MURMUR [None]
  - GENERAL PHYSICAL HEALTH DETERIORATION [None]
  - ABDOMINAL PAIN [None]
  - RALES [None]
  - PERIPHERAL COLDNESS [None]
